FAERS Safety Report 10147361 (Version 2)
Quarter: 2015Q2

REPORT INFORMATION
  Report Type: Spontaneous
  Country: US (occurrence: US)
  Receive Date: 20140501
  Receipt Date: 20150622
  Transmission Date: 20150821
  Serious: No
  Sender: FDA-Public Use
  Company Number: US-SA-2014SA024767

PATIENT
  Age: 39 Year
  Sex: Male
  Weight: 76.5 kg

DRUGS (6)
  1. LISINOPRIL. [Concomitant]
     Active Substance: LISINOPRIL
     Indication: HYPERTENSION
  2. HECTOROL [Suspect]
     Active Substance: DOXERCALCIFEROL
     Indication: HYPERPARATHYROIDISM SECONDARY
     Dosage: DOSE: 3- 2MCG VIALS
     Route: 042
     Dates: start: 20131218, end: 20131218
  3. MINOXIDIL. [Concomitant]
     Active Substance: MINOXIDIL
     Indication: HYPERTENSION
     Dates: start: 20130118
  4. HYDRALAZINE [Concomitant]
     Active Substance: HYDRALAZINE HYDROCHLORIDE
     Indication: HYPERTENSION
  5. SENSIPAR [Concomitant]
     Active Substance: CINACALCET HYDROCHLORIDE
     Indication: HYPERPARATHYROIDISM SECONDARY
     Route: 048
     Dates: start: 20130118
  6. LOPRESSOR [Concomitant]
     Active Substance: METOPROLOL TARTRATE
     Indication: HYPERTENSION

REACTIONS (5)
  - Palpitations [Recovered/Resolved]
  - Dyspnoea [Unknown]
  - Feeling hot [Unknown]
  - Chest discomfort [Unknown]
  - Cough [Recovered/Resolved]

NARRATIVE: CASE EVENT DATE: 20131218
